FAERS Safety Report 15059551 (Version 1)
Quarter: 2018Q2

REPORT INFORMATION
  Report Type: Spontaneous
  Country: US (occurrence: US)
  Receive Date: 20180605
  Receipt Date: 20180605
  Transmission Date: 20180711
  Serious: No
  Sender: FDA-Public Use
  Company Number: None

PATIENT
  Age: 29 Year
  Sex: Female

DRUGS (1)
  1. MAKENA [Suspect]
     Active Substance: HYDROXYPROGESTERONE CAPROATE
     Dates: start: 20180220, end: 20180605

REACTIONS (3)
  - Fall [None]
  - Hypoaesthesia [None]
  - Ligament rupture [None]

NARRATIVE: CASE EVENT DATE: 20180531
